FAERS Safety Report 4729533-5 (Version None)
Quarter: 2005Q3

REPORT INFORMATION
  Report Type: 
  Country: None (occurrence: None)
  Receive Date: 20050801
  Receipt Date: 20050725
  Transmission Date: 20060218
  Serious: Yes (Disabling)
  Sender: FDA-Public Use
  Company Number: US-MERCK-0507USA03913

PATIENT
  Sex: Male

DRUGS (3)
  1. VIOXX [Suspect]
     Indication: PAIN
     Route: 048
     Dates: start: 20030226, end: 20030916
  2. VIOXX [Suspect]
     Route: 048
     Dates: start: 20040208, end: 20040301
  3. CELEBREX [Suspect]
     Indication: PAIN
     Route: 048
     Dates: start: 20030202, end: 20030916

REACTIONS (1)
  - MYOCARDIAL INFARCTION [None]
